FAERS Safety Report 24237937 (Version 1)
Quarter: 2024Q3

REPORT INFORMATION
  Report Type: Spontaneous
  Country: US (occurrence: US)
  Receive Date: 20240822
  Receipt Date: 20240822
  Transmission Date: 20241017
  Serious: Yes (Other)
  Sender: PFIZER
  Company Number: US-PFIZER INC-202400240734

PATIENT
  Sex: Male
  Weight: 46.4 kg

DRUGS (16)
  1. IRINOTECAN HYDROCHLORIDE [Suspect]
     Active Substance: IRINOTECAN HYDROCHLORIDE
     Indication: Neoplasm malignant
     Dosage: LRINOTECAN, TEMOZOLOMIDE AND DINUTUXIMAB/GMCSF X 2 CYCLES
     Dates: start: 201912
  2. IRINOTECAN HYDROCHLORIDE [Suspect]
     Active Substance: IRINOTECAN HYDROCHLORIDE
     Dosage: 4 MORE CYCLES OF IRINO/TEMO/DINUTUXIMAB + GMCSF
     Dates: start: 202002
  3. IRINOTECAN HYDROCHLORIDE [Suspect]
     Active Substance: IRINOTECAN HYDROCHLORIDE
     Dosage: LRINOTECAN, TEMOZOLOMIDE AND DINUTUXIMAB/GMCSF X 2 CYCLES
     Dates: start: 202105
  4. IRINOTECAN HYDROCHLORIDE [Suspect]
     Active Substance: IRINOTECAN HYDROCHLORIDE
     Dosage: LRINOTECAN, TEMOZOLOMIDE AND DINUTUXIMAB/GMCSF X 4 CYCLES
     Dates: start: 202109, end: 202109
  5. TEMOZOLOMIDE [Suspect]
     Active Substance: TEMOZOLOMIDE
     Indication: Neoplasm malignant
     Dosage: LRINOTECAN, TEMOZOLOMIDE AND DINUTUXIMAB/GMCSF X 2 CYCLES
     Dates: start: 201912
  6. TEMOZOLOMIDE [Suspect]
     Active Substance: TEMOZOLOMIDE
     Dosage: 4 MORE CYCLES OF IRINO/TEMO/DINUTUXIMAB + GMCSF
     Dates: start: 202002
  7. TEMOZOLOMIDE [Suspect]
     Active Substance: TEMOZOLOMIDE
     Dosage: LRINOTECAN, TEMOZOLOMIDE AND DINUTUXIMAB/GMCSF X 2 CYCLES
     Dates: start: 202105
  8. TEMOZOLOMIDE [Suspect]
     Active Substance: TEMOZOLOMIDE
     Dosage: LRINOTECAN, TEMOZOLOMIDE AND DINUTUXIMAB/GMCSF X 4 CYCLES
     Dates: start: 202109, end: 202109
  9. DINUTUXIMAB [Suspect]
     Active Substance: DINUTUXIMAB
     Indication: Neoplasm malignant
     Dosage: LRINOTECAN, TEMOZOLOMIDE AND DINUTUXIMAB/GMCSF X 2 CYCLES
     Dates: start: 201912
  10. DINUTUXIMAB [Suspect]
     Active Substance: DINUTUXIMAB
     Dosage: 4 MORE CYCLES OF IRINO/TEMO/DINUTUXIMAB + GMCSF
     Dates: start: 202002
  11. DINUTUXIMAB [Suspect]
     Active Substance: DINUTUXIMAB
     Dosage: LRINOTECAN, TEMOZOLOMIDE AND DINUTUXIMAB/GMCSF X 2 CYCLES
     Dates: start: 202105
  12. DINUTUXIMAB [Suspect]
     Active Substance: DINUTUXIMAB
     Dosage: LRINOTECAN, TEMOZOLOMIDE AND DINUTUXIMAB/GMCSF X 4 CYCLES
     Dates: start: 202109, end: 202109
  13. GRANULOCYTE-MACROPHAGE COLONY-STIMULATING FACTOR [Suspect]
     Active Substance: GRANULOCYTE-MACROPHAGE COLONY-STIMULATING FACTOR
     Indication: Neoplasm malignant
     Dosage: LRINOTECAN, TEMOZOLOMIDE AND DINUTUXIMAB/GMCSF X 2 CYCLES
     Dates: start: 201912
  14. GRANULOCYTE-MACROPHAGE COLONY-STIMULATING FACTOR [Suspect]
     Active Substance: GRANULOCYTE-MACROPHAGE COLONY-STIMULATING FACTOR
     Dosage: 4 MORE CYCLES OF IRINO/TEMO/DINUTUXIMAB + GMCSF
     Dates: start: 202002
  15. GRANULOCYTE-MACROPHAGE COLONY-STIMULATING FACTOR [Suspect]
     Active Substance: GRANULOCYTE-MACROPHAGE COLONY-STIMULATING FACTOR
     Dosage: LRINOTECAN, TEMOZOLOMIDE AND DINUTUXIMAB/GMCSF X 2 CYCLES
     Dates: start: 202105
  16. GRANULOCYTE-MACROPHAGE COLONY-STIMULATING FACTOR [Suspect]
     Active Substance: GRANULOCYTE-MACROPHAGE COLONY-STIMULATING FACTOR
     Dosage: LRINOTECAN, TEMOZOLOMIDE AND DINUTUXIMAB/GMCSF X 4 CYCLES
     Dates: start: 202109, end: 202109

REACTIONS (1)
  - Myelodysplastic syndrome [Unknown]

NARRATIVE: CASE EVENT DATE: 20200101
